FAERS Safety Report 19630802 (Version 4)
Quarter: 2021Q4

REPORT INFORMATION
  Report Type: Spontaneous
  Country: None (occurrence: US)
  Receive Date: 20210728
  Receipt Date: 20211008
  Transmission Date: 20220303
  Serious: No
  Sender: FDA-Public Use
  Company Number: US-SA-SAC20210712001257

PATIENT
  Age: 13 Year
  Sex: Female

DRUGS (21)
  1. LUMIZYME [Suspect]
     Active Substance: ALGLUCOSIDASE ALFA
     Indication: Glycogen storage disease type II
     Dosage: 750 MG, QOW
     Route: 042
     Dates: start: 20200312
  2. ALBUTEROL [Concomitant]
     Active Substance: ALBUTEROL
  3. GLYCERIN [Concomitant]
     Active Substance: GLYCERIN
  4. IBUPROFEN [Concomitant]
     Active Substance: IBUPROFEN
  5. DIPHENHYDRAMINE [Concomitant]
     Active Substance: DIPHENHYDRAMINE
  6. HEPARIN [Concomitant]
     Active Substance: HEPARIN SODIUM
     Dosage: UNK
  7. LIDOCAINE [Concomitant]
     Active Substance: LIDOCAINE
  8. LIDOCAINE\PRILOCAINE [Concomitant]
     Active Substance: LIDOCAINE\PRILOCAINE
  9. SODIUM CHLORIDE [Concomitant]
     Active Substance: SODIUM CHLORIDE
  10. EPINEPHRINE [Concomitant]
     Active Substance: EPINEPHRINE
  11. SOLU-MEDROL [Concomitant]
     Active Substance: METHYLPREDNISOLONE SODIUM SUCCINATE
  12. FUROSEMIDE [Concomitant]
     Active Substance: FUROSEMIDE
  13. FERROUS SULFATE [Concomitant]
     Active Substance: FERROUS SULFATE
  14. PULMICORT TURBUHALER [Concomitant]
     Active Substance: BUDESONIDE
  15. CETIRIZINE [Concomitant]
     Active Substance: CETIRIZINE HYDROCHLORIDE
  16. VITAMIN D3 [Concomitant]
     Active Substance: CHOLECALCIFEROL
  17. HIGH DENSITY POLYETHYLENE [Concomitant]
     Active Substance: HIGH DENSITY POLYETHYLENE
  18. OXYGEN [Concomitant]
     Active Substance: OXYGEN
  19. SENNA LAXATIVE [Concomitant]
     Active Substance: SENNOSIDES
  20. SODIUM CHLORIDE [Concomitant]
     Active Substance: SODIUM CHLORIDE
  21. CHILDREN^S MULTIVITAMIN [Concomitant]

REACTIONS (5)
  - Nasopharyngitis [Unknown]
  - Pyrexia [Unknown]
  - Nasal congestion [Unknown]
  - COVID-19 [Unknown]
  - SARS-CoV-2 test positive [Unknown]

NARRATIVE: CASE EVENT DATE: 20210825
